FAERS Safety Report 7163268-7 (Version None)
Quarter: 2010Q4

REPORT INFORMATION
  Report Type: 
  Country: None (occurrence: None)
  Receive Date: 20101215
  Receipt Date: 20100528
  Transmission Date: 20110411
  Serious: No
  Sender: FDA-Public Use
  Company Number: US-ABBOTT-10P-163-0648919-00

PATIENT
  Age: 76 Year
  Sex: Male
  Weight: 70.37 kg

DRUGS (6)
  1. HYTRIN [Suspect]
     Indication: HYPERTENSION
     Route: 048
  2. HYTRIN [Suspect]
     Indication: URINARY TRACT DISORDER
     Dosage: WEANED DOWN TO GET OFF THE MEDICATION
     Route: 048
  3. HYTRIN [Suspect]
     Route: 048
  4. HYTRIN [Suspect]
     Route: 048
  5. HYTRIN [Suspect]
     Route: 048
  6. FLOMAX [Concomitant]
     Indication: URINARY TRACT DISORDER

REACTIONS (3)
  - BLOOD PRESSURE INCREASED [None]
  - DRUG INEFFECTIVE [None]
  - ERECTILE DYSFUNCTION [None]
